FAERS Safety Report 18373803 (Version 1)
Quarter: 2020Q4

REPORT INFORMATION
  Report Type: Spontaneous
  Country: CA (occurrence: CA)
  Receive Date: 20201012
  Receipt Date: 20201012
  Transmission Date: 20210114
  Serious: Yes (Hospitalization, Other)
  Sender: FDA-Public Use
  Company Number: CA-JNJFOC-20201004994

PATIENT
  Sex: Male

DRUGS (5)
  1. XELJANZ [Concomitant]
     Active Substance: TOFACITINIB CITRATE
     Indication: COLITIS ULCERATIVE
     Route: 048
  2. ASACOL [Suspect]
     Active Substance: MESALAMINE
     Indication: PRODUCT USED FOR UNKNOWN INDICATION
     Route: 065
  3. HUMIRA [Suspect]
     Active Substance: ADALIMUMAB
     Indication: COLITIS ULCERATIVE
     Route: 058
  4. PREDNISONE. [Concomitant]
     Active Substance: PREDNISONE
     Indication: PRODUCT USED FOR UNKNOWN INDICATION
     Route: 065
  5. REMICADE [Suspect]
     Active Substance: INFLIXIMAB
     Indication: PRODUCT USED FOR UNKNOWN INDICATION
     Route: 042

REACTIONS (10)
  - Colitis ulcerative [Recovered/Resolved]
  - Ulcer [Recovered/Resolved]
  - Drug hypersensitivity [Recovered/Resolved]
  - Pancreatitis [Recovered/Resolved]
  - Therapeutic product effect decreased [Recovered/Resolved]
  - Abdominal pain [Recovered/Resolved]
  - Adverse drug reaction [Recovered/Resolved]
  - Frequent bowel movements [Recovered/Resolved]
  - Inflammation [Recovered/Resolved]
  - Haematochezia [Recovered/Resolved]
